FAERS Safety Report 7231894-2 (Version None)
Quarter: 2011Q1

REPORT INFORMATION
  Report Type: 
  Country: None (occurrence: None)
  Receive Date: 20110118
  Receipt Date: 20110107
  Transmission Date: 20110831
  Serious: Yes (Other)
  Sender: FDA-Public Use
  Company Number: US-MYLANLABS-2011S1000613

PATIENT
  Sex: Male

DRUGS (8)
  1. DIGOXIN [Concomitant]
  2. CARVEDILOL [Concomitant]
  3. IRON [Concomitant]
  4. HYDRALAZINE [Suspect]
     Indication: HYPERTENSION
  5. FAMOTIDINE [Concomitant]
  6. FIBER [Concomitant]
  7. NIFEDIPINE [Suspect]
     Indication: HYPERTENSION
  8. NIFEDIPINE [Suspect]
     Indication: HYPERTENSION

REACTIONS (7)
  - OVERDOSE [None]
  - GASTROINTESTINAL DISORDER [None]
  - DRUG EFFECT DECREASED [None]
  - OEDEMA PERIPHERAL [None]
  - MEDICATION RESIDUE [None]
  - BLOOD PRESSURE INADEQUATELY CONTROLLED [None]
  - PRODUCT QUALITY ISSUE [None]
